FAERS Safety Report 7747485-0 (Version None)
Quarter: 2011Q3

REPORT INFORMATION
  Report Type: 
  Country: None (occurrence: None)
  Receive Date: 20110913
  Receipt Date: 20110906
  Transmission Date: 20111222
  Serious: Yes (Other)
  Sender: FDA-Public Use
  Company Number: US-PFIZER INC-2011208799

PATIENT
  Sex: Female
  Weight: 106.6 kg

DRUGS (14)
  1. CYMBALTA [Concomitant]
     Indication: FIBROMYALGIA
     Dosage: 60 MG, 2X/DAY
     Route: 048
     Dates: start: 20090601, end: 20100401
  2. TRAZODONE [Concomitant]
     Indication: SLEEP DISORDER
     Dosage: UNK
  3. BACLOFEN [Concomitant]
     Dosage: UNK
  4. INSULIN [Concomitant]
     Indication: TYPE 2 DIABETES MELLITUS
     Dosage: UNK
  5. LEVOTHYROXINE [Concomitant]
     Indication: HYPOTHYROIDISM
     Dosage: UNK
  6. LYRICA [Suspect]
     Indication: FIBROMYALGIA
     Dosage: ORAL CAPSULE TWO TIMES A DAY
     Route: 048
     Dates: start: 20090901, end: 20100401
  7. ALPRAZOLAM [Concomitant]
     Indication: ANXIETY DISORDER
     Dosage: UNK
  8. AMBIEN [Concomitant]
     Dosage: UNK
  9. NEURONTIN [Suspect]
     Indication: FIBROMYALGIA
     Dosage: 300 MG, 3X/DAY
     Route: 048
     Dates: start: 20110301, end: 20110101
  10. GLYBURIDE [Concomitant]
     Indication: TYPE 2 DIABETES MELLITUS
     Dosage: UNK
  11. VITAMIN D [Concomitant]
     Dosage: UNK, WEEKLY
  12. NEURONTIN [Suspect]
     Dosage: 100 MG, 3X/DAY
     Route: 048
     Dates: start: 20110101, end: 20110501
  13. CELEXA [Concomitant]
     Dosage: UNK
  14. TRAMADOL [Concomitant]
     Dosage: UNK

REACTIONS (3)
  - LOSS OF CONSCIOUSNESS [None]
  - THYROID FUNCTION TEST ABNORMAL [None]
  - BLOOD PRESSURE INCREASED [None]
